FAERS Safety Report 5221524-3 (Version None)
Quarter: 2007Q1

REPORT INFORMATION
  Report Type: 
  Country: None (occurrence: None)
  Receive Date: 20070126
  Receipt Date: 20070119
  Transmission Date: 20070707
  Serious: Yes (Other)
  Sender: FDA-Public Use
  Company Number: JP-PFIZER INC-2007006484

PATIENT
  Age: 93 Year
  Sex: Female

DRUGS (6)
  1. HALCION [Suspect]
     Dosage: DAILY DOSE:.25MG
     Route: 048
  2. ADALAT [Concomitant]
     Route: 048
  3. LUDIOMIL [Concomitant]
     Route: 048
  4. LASIX [Concomitant]
     Route: 048
  5. ALLOPURINOL SODIUM [Concomitant]
     Route: 048
  6. VALSARTAN [Concomitant]
     Route: 048

REACTIONS (1)
  - DELIRIUM [None]
